FAERS Safety Report 7237127-5 (Version None)
Quarter: 2011Q1

REPORT INFORMATION
  Report Type: 
  Country: None (occurrence: None)
  Receive Date: 20110121
  Receipt Date: 20110112
  Transmission Date: 20110831
  Serious: Yes (Other)
  Sender: FDA-Public Use
  Company Number: US-BAYER-2011-006186

PATIENT
  Sex: Female

DRUGS (3)
  1. YAZ [Suspect]
     Indication: PRODUCT USED FOR UNKNOWN INDICATION
     Dosage: UNK
     Dates: start: 19950101, end: 20060101
  2. YASMIN [Suspect]
     Indication: PRODUCT USED FOR UNKNOWN INDICATION
     Dosage: UNK
     Dates: start: 19950101, end: 20060101
  3. OCELLA [Suspect]
     Indication: PRODUCT USED FOR UNKNOWN INDICATION
     Dosage: UNK
     Dates: start: 19950101, end: 20060101

REACTIONS (6)
  - EMOTIONAL DISTRESS [None]
  - ANXIETY [None]
  - CARDIAC VALVE DISEASE [None]
  - AORTIC VALVE INCOMPETENCE [None]
  - PAIN [None]
  - PULMONARY EMBOLISM [None]
